FAERS Safety Report 6501483-3 (Version None)
Quarter: 2009Q4

REPORT INFORMATION
  Report Type: 
  Country: None (occurrence: None)
  Receive Date: 20091216
  Receipt Date: 20091208
  Transmission Date: 20100525
  Serious: Yes (Congenital Anomaly)
  Sender: FDA-Public Use
  Company Number: A0680501A

PATIENT
  Sex: Male

DRUGS (9)
  1. PAXIL [Suspect]
     Indication: DEPRESSION
     Dosage: 20MG THREE TIMES PER DAY
     Dates: start: 20000101, end: 20060101
  2. PAROXETINE HYDROCHLORIDE [Suspect]
     Dosage: 20MG PER DAY
     Dates: start: 20051121, end: 20060101
  3. PAXIL CR [Suspect]
     Dosage: 60MG PER DAY
     Dates: start: 20060101, end: 20070101
  4. CELEXA [Concomitant]
  5. WELLBUTRIN [Concomitant]
  6. REQUIP [Concomitant]
  7. PREVACID [Concomitant]
  8. VITAMIN AND MINERAL PRENATAL SUPPLEMENT W/ FOLIC ACID CAP [Concomitant]
  9. IRON [Concomitant]

REACTIONS (2)
  - DRUG EXPOSURE DURING PREGNANCY [None]
  - TALIPES [None]
